FAERS Safety Report 6894877-8 (Version None)
Quarter: 2010Q3

REPORT INFORMATION
  Report Type: 
  Country: None (occurrence: None)
  Receive Date: 20100802
  Receipt Date: 20100726
  Transmission Date: 20110219
  Serious: Yes (Death, Hospitalization)
  Sender: FDA-Public Use
  Company Number: JP-ROCHE-408573

PATIENT
  Sex: Female
  Weight: 57 kg

DRUGS (3)
  1. HERCEPTIN [Suspect]
     Indication: BREAST CANCER METASTATIC
     Route: 041
     Dates: start: 20040814, end: 20050606
  2. XELODA [Concomitant]
     Route: 048
     Dates: start: 20050601, end: 20050601
  3. TAXOTERE [Concomitant]
     Route: 041

REACTIONS (4)
  - BREAST CANCER [None]
  - CARDIAC DISORDER [None]
  - CARDIAC FAILURE CONGESTIVE [None]
  - MALIGNANT PLEURAL EFFUSION [None]
